FAERS Safety Report 19802459 (Version 1)
Quarter: 2021Q3

REPORT INFORMATION
  Report Type: Spontaneous
  Country: GB (occurrence: GB)
  Receive Date: 20210904
  Receipt Date: 20210904
  Transmission Date: 20211014
  Serious: Yes (Disabling)
  Sender: FDA-Public Use
  Company Number: None

PATIENT
  Age: 7 Year
  Sex: Female
  Weight: 13.5 kg

DRUGS (5)
  1. SENNA [Concomitant]
     Active Substance: SENNA LEAF\SENNOSIDES\SENNOSIDES A AND B
  2. COLONIS A CLINIGIN COMPANY MELATONIN [Suspect]
     Active Substance: MELATONIN
     Indication: SLEEP DISORDER
     Dosage: ?          QUANTITY:5 TEASPOON(S);OTHER ROUTE:SYRINGE?
     Dates: start: 20190101, end: 20210309
  3. MOVICOL [Concomitant]
     Active Substance: POLYETHYLENE GLYCOL 3350\POTASSIUM CHLORIDE\SODIUM BICARBONATE\SODIUM CHLORIDE
  4. GAVISCON [Concomitant]
     Active Substance: ALUMINUM HYDROXIDE\MAGNESIUM CARBONATE
  5. LACTOLOSE [Concomitant]

REACTIONS (3)
  - Abdominal pain upper [None]
  - Gastric disorder [None]
  - Recalled product administered [None]

NARRATIVE: CASE EVENT DATE: 20210108
